FAERS Safety Report 6268866-0 (Version None)
Quarter: 2009Q3

REPORT INFORMATION
  Report Type: 
  Country: None (occurrence: None)
  Receive Date: 20090715
  Receipt Date: 20090702
  Transmission Date: 20100115
  Serious: Yes (Other)
  Sender: FDA-Public Use
  Company Number: PHHY2009JP27238

PATIENT
  Age: 77 Year
  Sex: Male

DRUGS (5)
  1. DIOVAN [Suspect]
     Indication: HYPERTENSION
     Dosage: 80 MG, QD
     Route: 048
     Dates: start: 20081001, end: 20090610
  2. HERBESSER ^DELTA^ [Concomitant]
     Dosage: 100 MG DAILY
     Route: 048
     Dates: start: 20081001
  3. PROHEPARUM [Concomitant]
     Indication: HEPATITIS
     Dosage: 3 DF, UNK
     Route: 048
  4. GLYCYRON [Concomitant]
     Indication: HEPATITIS
     Dosage: 3 DF, UNK
     Route: 048
  5. URSO 250 [Concomitant]
     Indication: HEPATITIS
     Dosage: 3 DF, UNK
     Route: 048

REACTIONS (2)
  - HAEMOGLOBIN DECREASED [None]
  - PANCYTOPENIA [None]
